FAERS Safety Report 6103145-3 (Version None)
Quarter: 2009Q1

REPORT INFORMATION
  Report Type: 
  Country: None (occurrence: None)
  Receive Date: 20090305
  Receipt Date: 20090220
  Transmission Date: 20090719
  Serious: Yes (Hospitalization, Other)
  Sender: FDA-Public Use
  Company Number: US-PFIZER INC-2009173273

PATIENT
  Sex: Female
  Weight: 63.502 kg

DRUGS (6)
  1. MICRONASE [Suspect]
     Indication: DIABETES MELLITUS
     Dosage: 10 MG, 2X/DAY
  2. GLIBENCLAMIDE [Suspect]
     Indication: DIABETES MELLITUS
     Dosage: 10 MG, 2X/DAY
  3. ACTOS [Concomitant]
     Dosage: UNK
  4. ZETIA [Concomitant]
     Dosage: UNK
  5. LISINOPRIL [Concomitant]
     Dosage: UNK
  6. METOPROLOL TARTRATE [Concomitant]
     Dosage: UNK

REACTIONS (4)
  - BLOOD GLUCOSE DECREASED [None]
  - BLOOD GLUCOSE INCREASED [None]
  - CHOLECYSTECTOMY [None]
  - TRANSIENT ISCHAEMIC ATTACK [None]
